FAERS Safety Report 20497264 (Version 2)
Quarter: 2022Q1

REPORT INFORMATION
  Report Type: Spontaneous
  Country: US (occurrence: US)
  Receive Date: 20220221
  Receipt Date: 20220309
  Transmission Date: 20220424
  Serious: No
  Sender: FDA-Public Use
  Company Number: US-ALKERMES INC.-ALK-2022-000786

PATIENT
  Sex: Male

DRUGS (4)
  1. VIVITROL [Suspect]
     Active Substance: NALTREXONE
     Indication: Alcoholism
     Dosage: 380 MILLIGRAM, QMO
     Route: 030
     Dates: start: 20220125, end: 20220125
  2. SUDAFED [Concomitant]
     Active Substance: PSEUDOEPHEDRINE HYDROCHLORIDE
     Indication: Sinus disorder
     Dosage: UNK
     Route: 065
  3. ORAJEL [Concomitant]
     Active Substance: ALLANTOIN\BENZOCAINE\CAMPHOR (NATURAL)\DIMETHICONE\MENTHOL
     Indication: Product used for unknown indication
     Dosage: UNK
     Route: 065
  4. UNSPECIFIED INGREDIENT [Concomitant]
     Active Substance: UNSPECIFIED INGREDIENT
     Indication: Alcoholism
     Dosage: UNK
     Route: 048

REACTIONS (4)
  - Tooth infection [Not Recovered/Not Resolved]
  - Injection site reaction [Unknown]
  - Injection site pain [Unknown]
  - Injection site discomfort [Recovered/Resolved]

NARRATIVE: CASE EVENT DATE: 20220125
